APPROVED DRUG PRODUCT: HYDROCORTISONE
Active Ingredient: HYDROCORTISONE
Strength: 2.5%
Dosage Form/Route: OINTMENT;TOPICAL
Application: A088039 | Product #001
Applicant: USL PHARMA INC
Approved: Sep 27, 1983 | RLD: No | RS: No | Type: DISCN